FAERS Safety Report 16987503 (Version 1)
Quarter: 2019Q4

REPORT INFORMATION
  Report Type: Other
  Country: US (occurrence: US)
  Receive Date: 20191102
  Receipt Date: 20191102
  Transmission Date: 20200122
  Serious: No
  Sender: FDA-Public Use
  Company Number: US-AMAG PHARMACEUTICALS, INC.-AMAG201905354

PATIENT
  Age: 39 Year
  Sex: Female
  Weight: 106.69 kg

DRUGS (1)
  1. MAKENA [Suspect]
     Active Substance: HYDROXYPROGESTERONE CAPROATE
     Indication: PREMATURE DELIVERY
     Route: 058
     Dates: start: 20191003, end: 20191003

REACTIONS (4)
  - Muscle spasms [Unknown]
  - Dizziness [Unknown]
  - Blood pressure fluctuation [Unknown]
  - Nausea [Unknown]

NARRATIVE: CASE EVENT DATE: 20191004
